FAERS Safety Report 15768194 (Version 1)
Quarter: 2018Q4

REPORT INFORMATION
  Report Type: Spontaneous
  Country: TR (occurrence: TR)
  Receive Date: 20181227
  Receipt Date: 20181227
  Transmission Date: 20190205
  Serious: Yes (Hospitalization)
  Sender: FDA-Public Use
  Company Number: TR-009507513-1812TUR009141

PATIENT
  Age: 53 Year
  Sex: Female

DRUGS (10)
  1. TIANEPTINE [Suspect]
     Active Substance: TIANEPTINE
     Indication: MAJOR DEPRESSION
     Dosage: 37.5 MILLIGRAM/DAY (IN EFFECTIVE DURATIONS)
  2. AGOMELATINE [Suspect]
     Active Substance: AGOMELATINE
     Indication: MAJOR DEPRESSION
     Dosage: 50 MILLIGRAM/DAY (IN EFFECTIVE DURATIONS)
  3. MODAFINIL. [Suspect]
     Active Substance: MODAFINIL
     Indication: MAJOR DEPRESSION
  4. LITHIUM. [Suspect]
     Active Substance: LITHIUM
     Indication: MAJOR DEPRESSION
  5. VENLAFAXINE HYDROCHLORIDE. [Suspect]
     Active Substance: VENLAFAXINE HYDROCHLORIDE
     Indication: MAJOR DEPRESSION
     Dosage: 300 MILLIGRAM/DAY (IN EFFECTIVE DURATIONS)
  6. FLUOXETINE [Suspect]
     Active Substance: FLUOXETINE HYDROCHLORIDE
     Indication: MAJOR DEPRESSION
     Dosage: 20 MILLIGRAM/DAY (IN EFFECTIVE DURATIONS)
  7. PAROXETINE. [Suspect]
     Active Substance: PAROXETINE
     Indication: MAJOR DEPRESSION
     Dosage: 40 MILLIGRAM/DAY (IN EFFECTIVE DURATIONS)
  8. QUETIAPINE FUMARATE. [Suspect]
     Active Substance: QUETIAPINE FUMARATE
     Indication: MAJOR DEPRESSION
     Dosage: 300 MILLIGRAM/DAY (IN EFFECTIVE DURATIONS)
  9. SERTRALINE HYDROCHLORIDE. [Suspect]
     Active Substance: SERTRALINE HYDROCHLORIDE
     Indication: MAJOR DEPRESSION
     Dosage: 200 MILLIGRAM/DAY (IN EFFECTIVE DURATIONS)
  10. MIRTAZAPINE. [Suspect]
     Active Substance: MIRTAZAPINE
     Indication: MAJOR DEPRESSION
     Dosage: 30 MILLIGRAM/DAY (IN EFFECTIVE DURATIONS)
     Route: 048

REACTIONS (1)
  - Therapy non-responder [Unknown]
